FAERS Safety Report 24108166 (Version 1)
Quarter: 2024Q3

REPORT INFORMATION
  Report Type: Report from Study
  Country: US (occurrence: None)
  Receive Date: 20240718
  Receipt Date: 20240718
  Transmission Date: 20241016
  Serious: Yes (Other)
  Sender: ASTRAZENECA
  Company Number: 2020SE08924

PATIENT
  Sex: Female

DRUGS (13)
  1. TAGRISSO [Suspect]
     Active Substance: OSIMERTINIB
     Indication: Lung neoplasm malignant
     Route: 048
     Dates: start: 201801
  2. ESTRADIOL [Concomitant]
     Active Substance: ESTRADIOL
  3. CRANBERRY [Concomitant]
     Active Substance: CRANBERRY
  4. NITROFURANTOIN [Concomitant]
     Active Substance: NITROFURANTOIN
  5. ELIQUIS [Concomitant]
     Active Substance: APIXABAN
  6. ZOFRAN [Concomitant]
     Active Substance: ONDANSETRON HYDROCHLORIDE
  7. ATIVAN [Concomitant]
     Active Substance: LORAZEPAM
  8. UNICOMPLEX-M [Concomitant]
  9. SENNA-S [Concomitant]
     Active Substance: DOCUSATE SODIUM\SENNOSIDES
  10. MIRALAX [Concomitant]
     Active Substance: POLYETHYLENE GLYCOL 3350
  11. COMPAZINE [Concomitant]
     Active Substance: PROCHLORPERAZINE MALEATE
  12. CEFDINIR [Concomitant]
     Active Substance: CEFDINIR
  13. PHENYLEPHRINE HYDROCHLORIDE [Concomitant]
     Active Substance: PHENYLEPHRINE HYDROCHLORIDE

REACTIONS (4)
  - Cardiac flutter [Unknown]
  - Urinary tract infection [Unknown]
  - Dyspnoea [Unknown]
  - Dizziness [Unknown]
